FAERS Safety Report 5074917-1 (Version None)
Quarter: 2006Q3

REPORT INFORMATION
  Report Type: 
  Country: None (occurrence: None)
  Receive Date: 20060809
  Receipt Date: 20060731
  Transmission Date: 20061208
  Serious: Yes (Hospitalization, Other)
  Sender: FDA-Public Use
  Company Number: PHFR2006GB02385

PATIENT
  Age: 64 Year
  Sex: Male

DRUGS (4)
  1. CLOZARIL [Suspect]
     Indication: SCHIZOPHRENIA
     Dosage: 450MG/DAY
     Route: 048
     Dates: start: 20050523, end: 20060803
  2. CLOZARIL [Suspect]
     Dosage: OVERDOSE 1350MG
     Route: 048
  3. RISPERIDONE [Suspect]
     Dosage: 3MG/DAY
  4. RISPERIDONE [Suspect]
     Dosage: OVERDOSE

REACTIONS (6)
  - DYSARTHRIA [None]
  - NEUTROPHIL COUNT INCREASED [None]
  - OVERDOSE [None]
  - SOMNOLENCE [None]
  - URINARY TRACT INFECTION [None]
  - WHITE BLOOD CELL COUNT INCREASED [None]
